FAERS Safety Report 9778269 (Version 1)
Quarter: 2013Q4

REPORT INFORMATION
  Report Type: Spontaneous
  Country: US (occurrence: None)
  Receive Date: 20131220
  Receipt Date: 20131220
  Transmission Date: 20140711
  Serious: No
  Sender: FDA-Public Use
  Company Number: None

PATIENT
  Age: 63 None
  Sex: 0

DRUGS (9)
  1. GABAPENTIN [Suspect]
     Indication: NEURALGIA
     Dosage: 1-2 CAPSULES AT BEDTIME BY MOUTH
     Route: 048
     Dates: start: 20131217, end: 20131218
  2. CRESTOR [Concomitant]
  3. ZETIA [Concomitant]
  4. LEXAPRO [Concomitant]
  5. ZYRETC(WHEN NEEDED) [Concomitant]
  6. BABY ASPIRIN [Concomitant]
  7. FISH OIL [Concomitant]
  8. VITAMIN D [Concomitant]
  9. VITAMIN E [Concomitant]

REACTIONS (1)
  - Hypersensitivity [None]
